FAERS Safety Report 6787536-3 (Version None)
Quarter: 2010Q2

REPORT INFORMATION
  Report Type: 
  Country: None (occurrence: None)
  Receive Date: 20100623
  Receipt Date: 20070716
  Transmission Date: 20101027
  Serious: Yes (Hospitalization, Other)
  Sender: FDA-Public Use
  Company Number: US-PFIZER INC-2006081328

PATIENT
  Sex: Female
  Weight: 69 kg

DRUGS (1)
  1. SUTENT [Suspect]
     Indication: RENAL CELL CARCINOMA
     Route: 065

REACTIONS (2)
  - HYPERTENSION [None]
  - LEFT VENTRICULAR FAILURE [None]
